FAERS Safety Report 10625082 (Version 1)
Quarter: 2014Q4

REPORT INFORMATION
  Report Type: Spontaneous
  Country: CZ (occurrence: None)
  Receive Date: 20141126
  Receipt Date: 20141126
  Transmission Date: 20150529
  Serious: Yes (Other)
  Sender: FDA-Public Use
  Company Number: IG002645

PATIENT
  Age: 30 Year
  Sex: Male

DRUGS (9)
  1. ADALIMUMAB [Concomitant]
     Active Substance: ADALIMUMAB
  2. CEFTRIAXONE. [Concomitant]
     Active Substance: CEFTRIAXONE
  3. CYCLOSPORINE. [Concomitant]
     Active Substance: CYCLOSPORINE
  4. FLEBOGAMMA 5% [Suspect]
     Active Substance: HUMAN IMMUNOGLOBULIN G
     Indication: MULTIPLE SCLEROSIS
     Route: 042
  5. ACITRETINE [Concomitant]
  6. ETANERCEPT [Concomitant]
     Active Substance: ETANERCEPT
  7. CORTICOSTEROIDS [Concomitant]
     Active Substance: CORTICOSTEROID NOS
  8. METHOTREXATE [Concomitant]
     Active Substance: METHOTREXATE
  9. USTEKINUMAB [Concomitant]
     Active Substance: USTEKINUMAB

REACTIONS (6)
  - Chills [None]
  - Lymphadenitis [None]
  - Malaise [None]
  - C-reactive protein increased [None]
  - Joint swelling [None]
  - Erythrodermic psoriasis [None]
